FAERS Safety Report 9961732 (Version 1)
Quarter: 2014Q1

REPORT INFORMATION
  Report Type: Report from Study
  Country: US (occurrence: US)
  Receive Date: 20140305
  Receipt Date: 20140305
  Transmission Date: 20141002
  Serious: No
  Sender: FDA-Public Use
  Company Number: US-ABBVIE-13P-163-1113191-00

PATIENT
  Age: 53 Year
  Sex: Male
  Weight: 140.74 kg

DRUGS (5)
  1. HUMIRA [Suspect]
     Indication: RHEUMATOID ARTHRITIS
     Dates: start: 201303, end: 20130605
  2. ARAVA [Concomitant]
     Indication: RHEUMATOID ARTHRITIS
  3. MORPHINE [Concomitant]
     Indication: RHEUMATOID ARTHRITIS
  4. HYDROCODONE [Concomitant]
     Indication: PAIN
  5. UNKNOWN INHALER [Concomitant]
     Indication: HYPERSENSITIVITY

REACTIONS (1)
  - Drug ineffective [Not Recovered/Not Resolved]
